FAERS Safety Report 9138279 (Version 4)
Quarter: 2013Q2

REPORT INFORMATION
  Report Type: Spontaneous
  Country: US (occurrence: US)
  Receive Date: 20130305
  Receipt Date: 20130416
  Transmission Date: 20140414
  Serious: Yes (Other)
  Sender: FDA-Public Use
  Company Number: US-009507513-1303USA000153

PATIENT
  Sex: Female
  Weight: 82.54 kg

DRUGS (5)
  1. PEGINTRON [Suspect]
     Indication: HEPATITIS C
     Dosage: UNK UNK, QD
     Dates: start: 20130203, end: 20130224
  2. PEGINTRON [Suspect]
     Dosage: UNK
     Dates: start: 2008
  3. REBETOL [Suspect]
     Indication: HEPATITIS C
     Dosage: 5 DF, QD
     Route: 048
     Dates: start: 20130203, end: 20130224
  4. REBETOL [Suspect]
     Dosage: UNK
     Dates: start: 2008
  5. PEGASYS [Suspect]
     Dosage: UNK, QW

REACTIONS (7)
  - Chronic obstructive pulmonary disease [Not Recovered/Not Resolved]
  - Pyrexia [Unknown]
  - Dyspnoea [Unknown]
  - Sinusitis [Unknown]
  - Restlessness [Unknown]
  - Respiratory disorder [Unknown]
  - Drug ineffective [Unknown]
